FAERS Safety Report 7309527-6 (Version None)
Quarter: 2011Q1

REPORT INFORMATION
  Report Type: 
  Country: None (occurrence: None)
  Receive Date: 20110223
  Receipt Date: 20110204
  Transmission Date: 20110831
  Serious: Yes (Other)
  Sender: FDA-Public Use
  Company Number: US-AMGEN-USASP2011000728

PATIENT
  Age: 61 Year
  Sex: Female

DRUGS (3)
  1. ENBREL [Suspect]
     Indication: RHEUMATOID ARTHRITIS
     Dosage: 50 MG, QWK
     Route: 058
     Dates: start: 20101221, end: 20110127
  2. PLAQUENIL [Concomitant]
  3. ENBREL [Suspect]
     Dates: start: 20101222

REACTIONS (5)
  - BLOOD GLUCOSE INCREASED [None]
  - WEIGHT DECREASED [None]
  - AMNESIA [None]
  - DIZZINESS [None]
  - INJECTION SITE PAIN [None]
